FAERS Safety Report 6215556-6 (Version None)
Quarter: 2009Q2

REPORT INFORMATION
  Report Type: 
  Country: None (occurrence: None)
  Receive Date: 20090605
  Receipt Date: 20070207
  Transmission Date: 20091009
  Serious: Yes (Other)
  Sender: FDA-Public Use
  Company Number: US-ASTRAZENECA-2006UW24465

PATIENT
  Age: 769 Month
  Sex: Female
  Weight: 65.8 kg

DRUGS (19)
  1. SEROQUEL [Suspect]
     Indication: DEPRESSION
     Route: 048
     Dates: start: 20000501, end: 20060201
  2. SEROQUEL [Suspect]
     Indication: SLEEP DISORDER
     Route: 048
     Dates: start: 20000501, end: 20060201
  3. SEROQUEL [Suspect]
     Indication: NERVOUSNESS
     Route: 048
     Dates: start: 20000501, end: 20060201
  4. SEROQUEL [Suspect]
     Dosage: 25-100 MG
     Route: 048
     Dates: start: 20020131, end: 20060119
  5. SEROQUEL [Suspect]
     Dosage: 25-100 MG
     Route: 048
     Dates: start: 20020131, end: 20060119
  6. SEROQUEL [Suspect]
     Dosage: 25-100 MG
     Route: 048
     Dates: start: 20020131, end: 20060119
  7. ZYPREXA [Concomitant]
  8. ZYPREXA [Concomitant]
     Route: 048
     Dates: start: 20000211, end: 20010719
  9. HYDROCHLOROTHIAZIDE [Concomitant]
     Indication: HYPERTENSION
     Route: 048
     Dates: start: 19920928, end: 20070731
  10. ATENOLOL [Concomitant]
     Indication: CHEST DISCOMFORT
     Route: 048
     Dates: start: 19980506
  11. ZOCOR [Concomitant]
     Route: 048
     Dates: start: 20000415, end: 20050223
  12. NEURONTIN [Concomitant]
     Route: 048
     Dates: start: 20000211, end: 20010131
  13. CELEXA [Concomitant]
     Dosage: 20-40 MG
     Route: 048
     Dates: start: 20010920
  14. NEXIUM [Concomitant]
     Indication: GASTROOESOPHAGEAL REFLUX DISEASE
     Route: 048
     Dates: start: 20040621
  15. GLUCOPHAGE [Concomitant]
     Indication: DIABETES MELLITUS
     Route: 048
     Dates: start: 20040124
  16. DIOVAN HCT [Concomitant]
     Dosage: 12.5-25 MG
     Route: 048
     Dates: start: 20040707
  17. TRICOR [Concomitant]
     Route: 048
     Dates: start: 20040625, end: 20050223
  18. CRESTOR [Concomitant]
     Route: 048
     Dates: start: 20050223, end: 20060119
  19. NIASPAN [Concomitant]
     Route: 048
     Dates: start: 20051222, end: 20060119

REACTIONS (3)
  - DIABETES MELLITUS [None]
  - DIABETES MELLITUS INADEQUATE CONTROL [None]
  - DIABETIC NEUROPATHY [None]
